FAERS Safety Report 20732212 (Version 1)
Quarter: 2022Q2

REPORT INFORMATION
  Report Type: Spontaneous
  Country: CA (occurrence: CA)
  Receive Date: 20220420
  Receipt Date: 20220420
  Transmission Date: 20220721
  Serious: Yes (Life-Threatening, Other)
  Sender: FDA-Public Use
  Company Number: 000969592

PATIENT
  Age: 45 Year
  Sex: Female

DRUGS (1)
  1. LEVONORGESTREL [Suspect]
     Active Substance: LEVONORGESTREL
     Indication: Post coital contraception
     Dosage: ONE DOSAGE FORM ONCE
     Route: 048

REACTIONS (3)
  - Ectopic pregnancy [Recovering/Resolving]
  - Salpingectomy [Recovering/Resolving]
  - Ovarian operation [Recovering/Resolving]
